FAERS Safety Report 9890777 (Version 1)
Quarter: 2014Q1

REPORT INFORMATION
  Report Type: Spontaneous
  Country: KR (occurrence: None)
  Receive Date: 20140210
  Receipt Date: 20140210
  Transmission Date: 20141002
  Serious: Yes (Hospitalization)
  Sender: FDA-Public Use
  Company Number: 2014P1000766

PATIENT
  Age: 33 Year
  Sex: Female

DRUGS (8)
  1. RIFAMPIN [Suspect]
     Indication: SPLEEN TUBERCULOSIS
  2. RIFAMPIN [Suspect]
     Indication: LYMPH NODE TUBERCULOSIS
  3. PYRAZINAMIDE [Suspect]
     Indication: SPLEEN TUBERCULOSIS
  4. PYRAZINAMIDE [Suspect]
     Indication: LYMPH NODE TUBERCULOSIS
  5. ISONIAZID [Suspect]
     Indication: SPLEEN TUBERCULOSIS
  6. ISONIAZID [Suspect]
     Indication: LYMPH NODE TUBERCULOSIS
  7. ETHAMBUTOL [Suspect]
     Indication: SPLEEN TUBERCULOSIS
  8. ETHAMBUTOL [Suspect]
     Indication: LYMPH NODE TUBERCULOSIS

REACTIONS (1)
  - Splenic rupture [None]
